FAERS Safety Report 13760157 (Version 1)
Quarter: 2017Q3

REPORT INFORMATION
  Report Type: Spontaneous
  Country: CH (occurrence: CH)
  Receive Date: 20170717
  Receipt Date: 20170717
  Transmission Date: 20171127
  Serious: Yes (Hospitalization, Other)
  Sender: FDA-Public Use
  Company Number: CH-BAUSCH-BL-2017-021524

PATIENT
  Age: 45 Year
  Sex: Female

DRUGS (5)
  1. BLEOMYCIN [Suspect]
     Active Substance: BLEOMYCIN SULFATE
     Indication: ANAL CANCER STAGE 0
     Dosage: SINGLE DOSE ON THE FIRST DAY
     Route: 042
  2. FLUOROURACIL. [Suspect]
     Active Substance: FLUOROURACIL
     Indication: ANAL CANCER STAGE 0
     Dosage: FOUR INTRA-ARTERIAL INFUSIONS PER DAY FOR TWO DAYS
     Route: 013
  3. METHOTREXATE. [Suspect]
     Active Substance: METHOTREXATE
     Indication: ANAL CANCER STAGE 0
     Dosage: FOUR INTRA-ARTERIAL INFUSIONS PER DAY FOR TWO DAYS
     Route: 013
  4. CISPLATIN. [Suspect]
     Active Substance: CISPLATIN
     Indication: ANAL CANCER STAGE 0
     Dosage: FOUR INTRA-ARTERIAL INFUSIONS PER DAY FOR TWO DAYS
     Route: 013
  5. MITOMYCIN. [Suspect]
     Active Substance: MITOMYCIN
     Indication: ANAL CANCER STAGE 0
     Dosage: FOUR INTRA-ARTERIAL INFUSIONS PER DAY FOR TWO DAYS
     Route: 013

REACTIONS (2)
  - Cardiogenic shock [Recovered/Resolved]
  - Stress cardiomyopathy [Recovered/Resolved]
